FAERS Safety Report 16693848 (Version 1)
Quarter: 2019Q3

REPORT INFORMATION
  Report Type: Spontaneous
  Country: US (occurrence: US)
  Receive Date: 20190627
  Receipt Date: 20190627
  Transmission Date: 20191004
  Serious: No
  Sender: FDA-Public Use
  Company Number: None

PATIENT
  Age: 78 Year
  Sex: Female
  Weight: 54.43 kg

DRUGS (12)
  1. LORAZEPAM. [Concomitant]
     Active Substance: LORAZEPAM
  2. FUROSEMIDE. [Concomitant]
     Active Substance: FUROSEMIDE
  3. MULTI VITAMIN - SR [Concomitant]
  4. SPIRONOLACTONE. [Concomitant]
     Active Substance: SPIRONOLACTONE
  5. IBUPROFEN. [Concomitant]
     Active Substance: IBUPROFEN
  6. ENTERIC ASPIRIN [Concomitant]
     Active Substance: ASPIRIN
  7. TRAMADOL. [Concomitant]
     Active Substance: TRAMADOL
  8. GLULSOMNINE CANDROTIN [Concomitant]
  9. MONTELUKAST 10MG TAB/ SUB FOR SINGULAIR 10MG TAB [Suspect]
     Active Substance: MONTELUKAST SODIUM
     Indication: LUNG DISORDER
     Dosage: ?          QUANTITY:10 MG MILLIGRAM(S);?
     Route: 048
     Dates: end: 20190605
  10. OMEGA 3 FISH OIL [Concomitant]
     Active Substance: FISH OIL\OMEGA-3 FATTY ACIDS
  11. VITAMIN B12 [Concomitant]
     Active Substance: CYANOCOBALAMIN
  12. LIPITOR [Concomitant]
     Active Substance: ATORVASTATIN CALCIUM

REACTIONS (4)
  - Adverse drug reaction [None]
  - Depression [None]
  - Hallucination [None]
  - Suicidal ideation [None]

NARRATIVE: CASE EVENT DATE: 201906
